FAERS Safety Report 10194281 (Version 2)
Quarter: 2014Q2

REPORT INFORMATION
  Report Type: Report from Study
  Country: US (occurrence: US)
  Receive Date: 20140526
  Receipt Date: 20140603
  Transmission Date: 20141212
  Serious: Yes (Other)
  Sender: FDA-Public Use
  Company Number: US-ROCHE-1406523

PATIENT
  Sex: 0

DRUGS (1)
  1. VISMODEGIB [Suspect]
     Indication: PANCREATIC CARCINOMA
     Route: 048

REACTIONS (1)
  - Jaundice [Recovered/Resolved with Sequelae]
